FAERS Safety Report 5092198-X (Version None)
Quarter: 2006Q3

REPORT INFORMATION
  Report Type: 
  Country: None (occurrence: None)
  Receive Date: 20060824
  Receipt Date: 20060816
  Transmission Date: 20061208
  Serious: Yes (Other)
  Sender: FDA-Public Use
  Company Number: 2006098899

PATIENT
  Sex: Male

DRUGS (1)
  1. BENADRYL [Suspect]
     Dosage: DRANK A WHOLE BOTTLE, ORAL
     Route: 048
     Dates: start: 20060815, end: 20060815

REACTIONS (4)
  - INTENTIONAL DRUG MISUSE [None]
  - MALAISE [None]
  - OVERDOSE [None]
  - VISUAL DISTURBANCE [None]
